FAERS Safety Report 7076683-7 (Version None)
Quarter: 2010Q4

REPORT INFORMATION
  Report Type: 
  Country: None (occurrence: None)
  Receive Date: 20101101
  Receipt Date: 20101018
  Transmission Date: 20110411
  Serious: Yes (Hospitalization)
  Sender: FDA-Public Use
  Company Number: US-ELI_LILLY_AND_COMPANY-US201010004651

PATIENT
  Age: 82 Year
  Sex: Female

DRUGS (7)
  1. FORTEO [Suspect]
     Indication: OSTEOPOROSIS
     Dosage: 20 UG, DAILY (1/D)
     Dates: end: 20101016
  2. ATENOLOL [Concomitant]
     Indication: HYPERTENSION
     Dosage: 25 MG, DAILY (1/D)
  3. LIPITOR [Concomitant]
     Dosage: 10 MG, DAILY (1/D)
  4. LEVOTHYROXINE [Concomitant]
     Indication: THYROID DISORDER
     Dosage: 50 UG, UNKNOWN
  5. ASPIRIN [Concomitant]
  6. VITAMIN D [Concomitant]
     Dosage: 600 MG, DAILY (1/D)
  7. CALTRATE +D [Concomitant]
     Dosage: 600 MG, UNKNOWN

REACTIONS (1)
  - UPPER LIMB FRACTURE [None]
